FAERS Safety Report 7525821-8 (Version None)
Quarter: 2011Q2

REPORT INFORMATION
  Report Type: 
  Country: None (occurrence: None)
  Receive Date: 20110606
  Receipt Date: 20110519
  Transmission Date: 20111010
  Serious: Yes (Death, Hospitalization)
  Sender: FDA-Public Use
  Company Number: A0759825A

PATIENT
  Age: 57 Year
  Sex: Male
  Weight: 113.6 kg

DRUGS (10)
  1. VITAMIN E [Concomitant]
  2. TENORMIN [Concomitant]
  3. ATENOLOL [Concomitant]
  4. VINEGAR [Concomitant]
  5. GLUCOTROL [Concomitant]
  6. AVANDIA [Suspect]
     Route: 048
     Dates: end: 20060714
  7. GLUCOPHAGE [Concomitant]
  8. GARLIC [Concomitant]
  9. GLIPIZIDE [Concomitant]
  10. ASPIRIN [Concomitant]

REACTIONS (2)
  - CARDIAC FAILURE CONGESTIVE [None]
  - CARDIAC ARREST [None]
